FAERS Safety Report 5228507-8 (Version None)
Quarter: 2007Q1

REPORT INFORMATION
  Report Type: 
  Country: None (occurrence: None)
  Receive Date: 20070131
  Receipt Date: 20070131
  Transmission Date: 20070707
  Serious: Yes (Hospitalization)
  Sender: FDA-Public Use
  Company Number: None

PATIENT
  Age: 73 Year
  Sex: Female
  Weight: 71.6683 kg

DRUGS (38)
  1. ABRAXANE [Suspect]
     Indication: OVARIAN CANCER RECURRENT
     Dosage: 169.0 MG/M2 D1,D8,D15 042
     Route: 065
     Dates: start: 20061117
  2. CARBOPLATIN [Suspect]
     Indication: OVARIAN CANCER RECURRENT
     Dosage: 405.0 MG/M2 D1 EVERY 28 DAYS 042
     Route: 065
     Dates: start: 20060623
  3. PREDNISONE TABLETS [Concomitant]
  4. DILTIAZEM CD CAPSULE [Concomitant]
  5. D5/0.45NS-KCL20MEQ [Concomitant]
  6. KCL TAB [Concomitant]
  7. ONDANSETRON HCL INJECTION [Concomitant]
  8. HYDROXYZINE HCL TABLET [Concomitant]
  9. ACETAMOPHEN TABLET [Concomitant]
  10. ACETAMINOPHEN [Concomitant]
  11. OXYCODONE-ACET (ROXICET) LIQUID [Concomitant]
  12. OXYCODONE-ACET (PERCOCET) TABLET [Concomitant]
  13. HYDRALAZINE HCL INJECTION (APRESOLINE) [Concomitant]
  14. LEVOTHYROXINE SO TABLET [Concomitant]
  15. SOD CL 0.9% INJ SYRINGE [Concomitant]
  16. PANTOPRAZOLE SOD INJECTION (PROTONIX) [Concomitant]
  17. ENOXAPARIN INJECTION (LOVENOX) [Concomitant]
  18. ALPRAZOLAM TABLET (XANAX) [Concomitant]
  19. PREDNISONE TABLET (XANAX) [Concomitant]
  20. PREDNISONE TABLET (DELTASONE) [Concomitant]
  21. KT 20 MEQ [Concomitant]
  22. LEVOTHROXINE SO TABLET (LEVOTHROID) [Concomitant]
  23. CARDIZEM [Concomitant]
  24. XANAX [Concomitant]
  25. CLARITHROMYCIN TABLET (BIAXIN) [Concomitant]
  26. NITORGLYCERIN 2% OINTMENT [Concomitant]
  27. PROFONIK [Concomitant]
  28. DUCOLAX SUPPOSITORY [Concomitant]
  29. LEVALBUTREOL HCL SOLUTION (XOPENEX) [Concomitant]
  30. AMBIEN [Concomitant]
  31. LOVENOX [Concomitant]
  32. NITRO OINMENT [Concomitant]
  33. LOPRESSION [Concomitant]
  34. LEVOTHYROXINE SO TABLET [Concomitant]
  35. NALOXONE HCL INJ (NARCON) [Concomitant]
  36. METOCLOPRAMIDE H INJ (REGLAN) [Concomitant]
  37. DIPHENHYDRAMINE INJ [Concomitant]
  38. SOLU-MEDROL [Concomitant]

REACTIONS (2)
  - METASTASES TO GASTROINTESTINAL TRACT [None]
  - SMALL INTESTINAL OBSTRUCTION [None]
